FAERS Safety Report 6588090-1 (Version None)
Quarter: 2010Q1

REPORT INFORMATION
  Report Type: 
  Country: None (occurrence: None)
  Receive Date: 20100218
  Receipt Date: 20100210
  Transmission Date: 20100710
  Serious: Yes (Hospitalization, Other)
  Sender: FDA-Public Use
  Company Number: PHHY2010BR05031

PATIENT
  Age: 74 Year
  Sex: Female
  Weight: 63 kg

DRUGS (5)
  1. HYGROTON [Suspect]
     Indication: DIURETIC THERAPY
     Dosage: ONE TABLET IN THE MORNING
     Route: 048
  2. DIOVAN [Suspect]
     Indication: HYPERTENSION
     Dosage: ONE TABLET (160 MG) DAILY IN MORNING
     Route: 048
  3. DIOVAN [Suspect]
     Dosage: 80 MG, QD
  4. COUMADIN [Concomitant]
     Indication: ANTICOAGULANT THERAPY
     Dosage: ONE TABLET AT NIGHT
     Route: 048
  5. PROPRANOLOL HYDROCHLORIDE [Concomitant]
     Indication: HEART RATE INCREASED
     Dosage: ONE TABLET DAILY
     Route: 048

REACTIONS (7)
  - BLOOD PRESSURE DECREASED [None]
  - BLOOD PRESSURE INCREASED [None]
  - LOSS OF CONSCIOUSNESS [None]
  - RETCHING [None]
  - SYNCOPE [None]
  - TREATMENT NONCOMPLIANCE [None]
  - WRONG TECHNIQUE IN DRUG USAGE PROCESS [None]
